FAERS Safety Report 12612662 (Version 6)
Quarter: 2016Q3

REPORT INFORMATION
  Report Type: Spontaneous
  Country: TR (occurrence: TR)
  Receive Date: 20160801
  Receipt Date: 20160916
  Transmission Date: 20161109
  Serious: Yes (Other)
  Sender: FDA-Public Use
  Company Number: PHHY2016TR102631

PATIENT
  Age: 52 Year
  Sex: Female

DRUGS (1)
  1. DICLOFENAC [Suspect]
     Active Substance: DICLOFENAC
     Indication: BACK PAIN
     Route: 030

REACTIONS (3)
  - Cellulitis [Recovered/Resolved]
  - Injection site abscess [Recovered/Resolved]
  - Embolia cutis medicamentosa [Recovered/Resolved]
